FAERS Safety Report 9720550 (Version 2)
Quarter: 2014Q1

REPORT INFORMATION
  Report Type: Spontaneous
  Country: US (occurrence: US)
  Receive Date: 20131129
  Receipt Date: 20140116
  Transmission Date: 20141002
  Serious: No
  Sender: FDA-Public Use
  Company Number: US-009507513-1311USA012691

PATIENT
  Age: 20 Year
  Sex: Female
  Weight: 43.54 kg

DRUGS (2)
  1. NEXPLANON [Suspect]
     Dosage: 68 MG, UNK
     Route: 059
     Dates: start: 20131104, end: 20131127
  2. NEXPLANON [Suspect]
     Dosage: UNK

REACTIONS (2)
  - Urticaria [Recovering/Resolving]
  - Rash generalised [Recovering/Resolving]
